FAERS Safety Report 7389600-7 (Version None)
Quarter: 2011Q2

REPORT INFORMATION
  Report Type: 
  Country: None (occurrence: None)
  Receive Date: 20110401
  Receipt Date: 20110317
  Transmission Date: 20111010
  Serious: Yes (Hospitalization, Other)
  Sender: FDA-Public Use
  Company Number: CH-BAYER-2011-020517

PATIENT
  Sex: Male
  Weight: 88 kg

DRUGS (29)
  1. LIQUAEMIN INJ [Concomitant]
     Indication: THROMBOSIS PROPHYLAXIS
     Dosage: UNK
     Dates: start: 20110303, end: 20110308
  2. TORREM [Concomitant]
     Indication: DIURETIC THERAPY
     Dosage: 20 MG, UNK
     Dates: start: 20110221, end: 20110307
  3. PARAGOL [Concomitant]
     Indication: CONSTIPATION
  4. NOVALGIN [Concomitant]
     Indication: PAIN
     Dosage: 4 G, UNK
     Dates: start: 20110218
  5. DAFALGAN [Concomitant]
     Indication: PAIN
     Dosage: 4 G, UNK
     Dates: start: 20110218
  6. ROCEPHIN [Concomitant]
     Indication: INFECTION
     Dosage: 2 G, UNK
     Dates: start: 20110222, end: 20110307
  7. ADALAT [Concomitant]
     Indication: HYPERTENSION
     Dosage: 20 MG, UNK
     Dates: start: 20110223, end: 20110223
  8. OXYCONTIN [Concomitant]
     Indication: PAIN
     Dosage: 20 MG, UNK
     Dates: start: 20110218
  9. FLUIMUCIL [Concomitant]
     Dosage: 600 MG, UNK
     Dates: start: 20110218, end: 20110304
  10. MOVIPREP [Concomitant]
     Dosage: 2 SACHET
     Dates: start: 20110303, end: 20110311
  11. GLIBENCLAMID [Concomitant]
     Dosage: 25 MG, UNK
     Dates: start: 20110307
  12. METFIN [Concomitant]
     Indication: DIABETES MELLITUS
     Dosage: 2000 MG, UNK
     Dates: start: 20110307
  13. ASPIRIN [Suspect]
     Indication: ANTICOAGULANT THERAPY
     Dosage: 100
  14. OXYNORM [Concomitant]
     Indication: PAIN
     Dosage: 10 MG, UNK
     Dates: start: 20110217, end: 20110311
  15. DEPONIT [Concomitant]
     Indication: HYPERTENSION
     Dosage: 21 5 TTS
     Dates: start: 20110223, end: 20110224
  16. GLIBENCLAMID [Concomitant]
     Indication: DIABETES MELLITUS
     Dosage: 3.5
  17. MARCOUMAR [Concomitant]
     Indication: THROMBOSIS PROPHYLAXIS
     Dosage: 3 MG, UNK
     Dates: start: 20110303
  18. CO-AMOXI [Concomitant]
     Indication: INFECTION
     Dosage: 18.75 MG, UNK
     Dates: start: 20110221, end: 20110222
  19. XARELTO [Interacting]
     Indication: OSTEOSYNTHESIS
  20. PANTOZOL [Concomitant]
     Dosage: 40 MG, UNK
     Dates: start: 20110218
  21. POTASSIUM CHLORIDE [Concomitant]
     Indication: ELECTROLYTE IMBALANCE
     Dosage: 1XT
     Dates: start: 20110221, end: 20110303
  22. PRADIF [Concomitant]
     Indication: PROSTATIC DISORDER
     Dosage: 400 MG, UNK
     Dates: start: 20110301
  23. XARELTO [Interacting]
     Indication: THROMBOSIS PROPHYLAXIS
     Dosage: 10 MG, DAILY
     Route: 001
     Dates: start: 20110217, end: 20110303
  24. AVANDIA [Concomitant]
     Indication: DIABETES MELLITUS
     Dosage: 8 MG, UNK
     Dates: start: 20110307
  25. POTASSIUM CHLORIDE [Concomitant]
     Dosage: 2
     Dates: start: 20110304, end: 20110305
  26. DOSTINEX [Concomitant]
     Indication: BLOOD PROLACTIN ABNORMAL
     Dosage: 0.25 MG, UNK
     Dates: start: 20110222
  27. DOSPEROPIN [Concomitant]
     Dosage: 4XT
     Route: 055
     Dates: start: 20110224, end: 20110310
  28. ACTRAPID [Concomitant]
     Indication: DIABETES MELLITUS
     Dosage: MAX. 8 IE
     Route: 058
     Dates: start: 20110217, end: 20110306
  29. VILAN [Concomitant]
     Dosage: 5 MG, UNK
     Dates: start: 20110217, end: 20110218

REACTIONS (3)
  - PULMONARY EMBOLISM [None]
  - BRONCHOPNEUMONIA [None]
  - HAEMOGLOBIN DECREASED [None]
